FAERS Safety Report 7314180-1 (Version None)
Quarter: 2011Q1

REPORT INFORMATION
  Report Type: 
  Country: None (occurrence: None)
  Receive Date: 20110225
  Receipt Date: 20100625
  Transmission Date: 20110831
  Serious: No
  Sender: FDA-Public Use
  Company Number: US-MYLANLABS-2010S1009503

PATIENT
  Age: 15 Year
  Sex: Female
  Weight: 49.9 kg

DRUGS (4)
  1. SOTRET [Suspect]
  2. ZYRTEC [Concomitant]
  3. AMNESTEEM [Suspect]
     Indication: ACNE CYSTIC
     Dates: end: 20100515
  4. YAZ /01502501/ [Suspect]
     Dates: start: 20100401

REACTIONS (4)
  - ANXIETY [None]
  - CHEST DISCOMFORT [None]
  - ARTHRALGIA [None]
  - PANIC ATTACK [None]
